FAERS Safety Report 9956951 (Version 1)
Quarter: 2014Q1

REPORT INFORMATION
  Report Type: Report from Study
  Country: US (occurrence: US)
  Receive Date: 20140304
  Receipt Date: 20140304
  Transmission Date: 20141002
  Serious: Yes (Other)
  Sender: FDA-Public Use
  Company Number: US-ABBVIE-13P-163-1099353-00

PATIENT
  Age: 52 Year
  Sex: Female

DRUGS (11)
  1. HUMIRA [Suspect]
     Indication: RHEUMATOID ARTHRITIS
     Dates: start: 201212
  2. PREDNISONE [Concomitant]
     Indication: RHEUMATOID ARTHRITIS
  3. OXYCODONE [Concomitant]
     Indication: ARTHRALGIA
     Dosage: 5-325 MG, AS NEEDED
  4. METFORMIN [Concomitant]
     Indication: DIABETES MELLITUS
     Dosage: 1000MG IN MORNING AND 500MG AT BEDTIME
  5. METOPROLOL [Concomitant]
     Indication: BLOOD PRESSURE
  6. LEFLUNOMIDE [Concomitant]
     Indication: ARTHRITIS
  7. LANTUS [Concomitant]
     Indication: DIABETES MELLITUS
  8. MIRTAZAPINE [Concomitant]
     Indication: ANXIOLYTIC THERAPY
  9. MIRTAZAPINE [Concomitant]
     Indication: POOR QUALITY SLEEP
  10. SIMVASTATIN [Concomitant]
     Indication: BLOOD CHOLESTEROL
  11. BENADRYL [Concomitant]
     Indication: HYPERSENSITIVITY

REACTIONS (6)
  - Surgery [Not Recovered/Not Resolved]
  - Injection site hypoaesthesia [Not Recovered/Not Resolved]
  - Injection site paraesthesia [Not Recovered/Not Resolved]
  - Hypoaesthesia [Not Recovered/Not Resolved]
  - Paraesthesia [Not Recovered/Not Resolved]
  - Pain in extremity [Not Recovered/Not Resolved]
